FAERS Safety Report 6252469-8 (Version None)
Quarter: 2009Q2

REPORT INFORMATION
  Report Type: 
  Country: None (occurrence: None)
  Receive Date: 20090629
  Receipt Date: 20090629
  Transmission Date: 20091009
  Serious: Yes (Disabling)
  Sender: FDA-Public Use
  Company Number: None

PATIENT
  Age: 69 Year
  Sex: Female
  Weight: 65.7716 kg

DRUGS (2)
  1. ZICAM NASAL GEL, MATRIXX INITIATIVE, INC [Suspect]
     Indication: NASOPHARYNGITIS
     Dosage: 1 SWAB 2X/DAY INSIDE NOSE
     Dates: start: 20061020, end: 20061025
  2. ZICAM NASAL GEL, MATRIXX INITIATIVE, INC [Suspect]
     Indication: NASOPHARYNGITIS
     Dosage: 1 SWAB 2X/DAY INSIDE NOSE
     Dates: start: 20061029, end: 20061030

REACTIONS (3)
  - ANOSMIA [None]
  - BURNING SENSATION [None]
  - PAIN [None]
